FAERS Safety Report 18550211 (Version 1)
Quarter: 2020Q4

REPORT INFORMATION
  Report Type: Spontaneous
  Country: FR (occurrence: FR)
  Receive Date: 20201126
  Receipt Date: 20201126
  Transmission Date: 20210114
  Serious: Yes (Hospitalization, Other)
  Sender: FDA-Public Use
  Company Number: FR-GLAXOSMITHKLINE-FR2020233409

PATIENT
  Age: 64 Year
  Sex: Male

DRUGS (2)
  1. BACTRIM [Suspect]
     Active Substance: SULFAMETHOXAZOLE\TRIMETHOPRIM
     Indication: ANTIBIOTIC PROPHYLAXIS
     Dosage: NP
     Route: 048
     Dates: start: 20200831, end: 20200916
  2. ZELITREX [Suspect]
     Active Substance: VALACYCLOVIR HYDROCHLORIDE
     Indication: ANTIVIRAL PROPHYLAXIS
     Dosage: NP
     Route: 048
     Dates: start: 20200831, end: 20200921

REACTIONS (4)
  - Pruritus [Recovering/Resolving]
  - Transaminases increased [Recovered/Resolved]
  - Cholestasis [Recovered/Resolved]
  - Rash maculo-papular [Recovering/Resolving]

NARRATIVE: CASE EVENT DATE: 20200910
